FAERS Safety Report 18151936 (Version 2)
Quarter: 2021Q2

REPORT INFORMATION
  Report Type: Spontaneous
  Country: US (occurrence: US)
  Receive Date: 20200814
  Receipt Date: 20210401
  Transmission Date: 20210717
  Serious: Yes (Death, Other)
  Sender: FDA-Public Use
  Company Number: US-PURDUE-USA-2020-0161057

PATIENT
  Sex: Male

DRUGS (1)
  1. OXYCONTIN [Suspect]
     Active Substance: OXYCODONE HYDROCHLORIDE
     Indication: PAIN MANAGEMENT
     Dosage: UNK
     Route: 048

REACTIONS (7)
  - Death [Fatal]
  - Cerebrovascular accident [Unknown]
  - Aphasia [Unknown]
  - Drug dependence [Unknown]
  - Drug abuse [Unknown]
  - Gait inability [Unknown]
  - General physical health deterioration [Unknown]
